FAERS Safety Report 9319947 (Version 3)
Quarter: 2013Q2

REPORT INFORMATION
  Report Type: Spontaneous
  Country: JP (occurrence: JP)
  Receive Date: 20130530
  Receipt Date: 20130613
  Transmission Date: 20140414
  Serious: Yes (Death, Hospitalization)
  Sender: FDA-Public Use
  Company Number: JP-PFIZER INC-2013062720

PATIENT
  Age: 7 Decade
  Sex: Male

DRUGS (5)
  1. INLYTA [Suspect]
     Indication: METASTATIC RENAL CELL CARCINOMA
     Dosage: 5 MG, 2X/DAY
     Route: 048
  2. INLYTA [Suspect]
     Dosage: 7 MG, 2X/DAY
     Route: 048
  3. INLYTA [Suspect]
     Dosage: 5 MG, 2X/DAY
     Route: 048
  4. LOXONIN [Suspect]
     Indication: BONE PAIN
     Dosage: UNK
     Route: 048
  5. GASTER [Concomitant]

REACTIONS (7)
  - Disease progression [Fatal]
  - Metastatic renal cell carcinoma [Fatal]
  - Malaise [Not Recovered/Not Resolved]
  - Decreased appetite [Not Recovered/Not Resolved]
  - Dysgeusia [Recovered/Resolved]
  - Vomiting [Not Recovered/Not Resolved]
  - Blood thyroid stimulating hormone increased [Not Recovered/Not Resolved]
